FAERS Safety Report 10434056 (Version 1)
Quarter: 2014Q3

REPORT INFORMATION
  Report Type: Spontaneous
  Country: CA (occurrence: CA)
  Receive Date: 20140905
  Receipt Date: 20140905
  Transmission Date: 20150326
  Serious: Yes (Other)
  Sender: FDA-Public Use
  Company Number: CA-TEVA-506040USA

PATIENT
  Age: 82 Year
  Sex: Female

DRUGS (3)
  1. RATIO-NYSTATIN [Suspect]
     Active Substance: NYSTATIN
     Indication: ORAL CANDIDIASIS
     Dosage: 100,000 UNITS/ML
     Route: 048
     Dates: start: 201401
  2. ZOPICLONE [Concomitant]
     Active Substance: ZOPICLONE
  3. PARIET [Concomitant]
     Active Substance: RABEPRAZOLE SODIUM

REACTIONS (2)
  - Oral mucosal exfoliation [Recovered/Resolved]
  - Mouth ulceration [Recovered/Resolved]

NARRATIVE: CASE EVENT DATE: 201401
